FAERS Safety Report 6802913-X (Version None)
Quarter: 2010Q2

REPORT INFORMATION
  Report Type: 
  Country: None (occurrence: None)
  Receive Date: 20100628
  Receipt Date: 20100614
  Transmission Date: 20101027
  Serious: Yes (Hospitalization, Other)
  Sender: FDA-Public Use
  Company Number: PHHY2010JP39431

PATIENT
  Age: 30 Year
  Sex: Male

DRUGS (4)
  1. CYCLOSPORINE [Suspect]
     Indication: RENAL TRANSPLANT
  2. METHYLPREDNISOLONE [Concomitant]
     Indication: RENAL TRANSPLANT
     Dosage: 500 MG/D, FOR TWO D
  3. MYCOPHENOLATE MOFETIL [Concomitant]
     Indication: RENAL TRANSPLANT
  4. BASILIXIMAB [Concomitant]
     Indication: RENAL TRANSPLANT

REACTIONS (9)
  - ARTERIAL DISORDER [None]
  - BLOOD CREATININE INCREASED [None]
  - BLOOD PRESSURE INCREASED [None]
  - FOCAL SEGMENTAL GLOMERULOSCLEROSIS [None]
  - GLOMERULAR VASCULAR DISORDER [None]
  - KIDNEY FIBROSIS [None]
  - PROTEINURIA [None]
  - RENAL TUBULAR ATROPHY [None]
  - URINE OUTPUT DECREASED [None]
